FAERS Safety Report 18227340 (Version 1)
Quarter: 2020Q3

REPORT INFORMATION
  Report Type: Spontaneous
  Country: GB (occurrence: GB)
  Receive Date: 20200903
  Receipt Date: 20200903
  Transmission Date: 20201103
  Serious: Yes (Other)
  Sender: FDA-Public Use
  Company Number: GB-MYLANLABS-2020M1075592

PATIENT
  Age: 56 Year
  Sex: Female

DRUGS (8)
  1. MYCOPHENOLATE MOFETIL. [Suspect]
     Active Substance: MYCOPHENOLATE MOFETIL
     Indication: IMMUNOSUPPRESSANT DRUG THERAPY
     Dosage: 500 MILLIGRAM, BID
     Route: 065
  2. CYCLOPHOSPHAMIDE. [Suspect]
     Active Substance: CYCLOPHOSPHAMIDE
     Indication: POST TRANSPLANT LYMPHOPROLIFERATIVE DISORDER
     Dosage: UNK, Q3W, 4 CYCLES OF R?CHOP THERAPY; THREE TIMES/WEEK
     Route: 065
     Dates: end: 201506
  3. RITUXIMAB. [Suspect]
     Active Substance: RITUXIMAB
     Dosage: UNK UNK, Q3W, 4 CYCLES OF R?CHOP THERAPY; THREE TIMES/WEEK
     Route: 065
     Dates: end: 201506
  4. PREDNISOLONE. [Suspect]
     Active Substance: PREDNISOLONE
     Indication: IMMUNOSUPPRESSANT DRUG THERAPY
     Dosage: 5 MILLIGRAM, QD
     Route: 065
  5. VINCRISTINE [Suspect]
     Active Substance: VINCRISTINE
     Indication: POST TRANSPLANT LYMPHOPROLIFERATIVE DISORDER
     Dosage: UNK UNK, Q3W, 4 CYCLES OF R?CHOP THERAPY; THREE TIMES/WEEK
     Route: 065
     Dates: end: 201506
  6. DOXORUBICIN [Suspect]
     Active Substance: DOXORUBICIN
     Indication: POST TRANSPLANT LYMPHOPROLIFERATIVE DISORDER
     Dosage: UNK, Q3W, 4 CYCLES OF R?CHOP THERAPY; THREE TIMES/WEEK
     Route: 065
     Dates: end: 201506
  7. RITUXIMAB. [Suspect]
     Active Substance: RITUXIMAB
     Indication: POST TRANSPLANT LYMPHOPROLIFERATIVE DISORDER
     Dosage: 375 MILLIGRAM/SQ. METER, QD, MONOTHERAPY
     Route: 065
  8. PREDNISONE. [Suspect]
     Active Substance: PREDNISONE
     Indication: POST TRANSPLANT LYMPHOPROLIFERATIVE DISORDER
     Dosage: UNK UNK, Q3W, 4 CYCLES OF R?CHOP THERAPY; THREE TIMES/WEEK
     Route: 065
     Dates: end: 201506

REACTIONS (5)
  - Post transplant lymphoproliferative disorder [Recovered/Resolved]
  - Cytomegalovirus infection reactivation [Recovering/Resolving]
  - Anaemia [Recovering/Resolving]
  - Skin bacterial infection [Recovering/Resolving]
  - Drug ineffective [Unknown]
